FAERS Safety Report 9782480 (Version 3)
Quarter: 2014Q2

REPORT INFORMATION
  Report Type: Report from Study
  Country: JP (occurrence: JP)
  Receive Date: 20131226
  Receipt Date: 20140403
  Transmission Date: 20141212
  Serious: Yes (Hospitalization, Other)
  Sender: FDA-Public Use
  Company Number: JP-JNJFOC-20131214487

PATIENT
  Age: 73 Year
  Sex: Female
  Weight: 59 kg

DRUGS (14)
  1. SIMPONI [Suspect]
     Indication: RHEUMATOID ARTHRITIS
     Route: 058
     Dates: start: 20130111, end: 20130111
  2. SIMPONI [Suspect]
     Indication: RHEUMATOID ARTHRITIS
     Route: 058
     Dates: start: 20121214, end: 20121214
  3. SIMPONI [Suspect]
     Indication: RHEUMATOID ARTHRITIS
     Route: 058
     Dates: start: 20121114, end: 20121114
  4. METHOTREXATE [Suspect]
     Indication: RHEUMATOID ARTHRITIS
     Route: 048
  5. PREDNISOLONE [Suspect]
     Indication: RHEUMATOID ARTHRITIS
     Route: 065
     Dates: start: 20130309
  6. PREDNISOLONE [Suspect]
     Indication: RHEUMATOID ARTHRITIS
     Route: 065
     Dates: end: 20130308
  7. HYPEN [Concomitant]
     Indication: RHEUMATOID ARTHRITIS
     Route: 048
  8. FOLIAMIN [Concomitant]
     Indication: PROPHYLAXIS
     Route: 065
  9. TEPRENONE [Concomitant]
     Indication: PROPHYLAXIS
     Route: 048
  10. GASTER D [Concomitant]
     Indication: PROPHYLAXIS
     Route: 048
  11. EDIROL [Concomitant]
     Indication: PROPHYLAXIS
     Route: 048
  12. CIMETIDINE [Concomitant]
     Indication: PROPHYLAXIS
     Route: 065
  13. SOFALCONE [Concomitant]
     Indication: PROPHYLAXIS
     Route: 048
  14. ALFAROL [Concomitant]
     Indication: OSTEOPOROSIS
     Route: 048

REACTIONS (2)
  - Sepsis [Recovered/Resolved]
  - Leukopenia [Recovered/Resolved]
